FAERS Safety Report 7473807-4 (Version None)
Quarter: 2011Q2

REPORT INFORMATION
  Report Type: 
  Country: None (occurrence: None)
  Receive Date: 20110511
  Receipt Date: 20110318
  Transmission Date: 20111010
  Serious: Yes (Hospitalization, Other)
  Sender: FDA-Public Use
  Company Number: CA-BAYER-2011-013551

PATIENT
  Age: 43 Year
  Sex: Female
  Weight: 76 kg

DRUGS (1)
  1. MIRENA [Suspect]
     Route: 015

REACTIONS (4)
  - PYREXIA [None]
  - CHILLS [None]
  - PELVIC INFLAMMATORY DISEASE [None]
  - MICROSCOPY [None]
